FAERS Safety Report 10330310 (Version 1)
Quarter: 2014Q3

REPORT INFORMATION
  Report Type: Spontaneous
  Country: BR (occurrence: BR)
  Receive Date: 20140722
  Receipt Date: 20140722
  Transmission Date: 20150326
  Serious: Yes (Other)
  Sender: FDA-Public Use
  Company Number: CHPA2014BR009394

PATIENT
  Age: 48 Year
  Sex: Female
  Weight: 66 kg

DRUGS (3)
  1. TRIMEDAL (ACETAMINOPHEN\ASCORBIC ACID\DIMETHINDENE MALEATE\PHENYLEPHRINE HYDROCHLORIDE\TROXERUTIN) [Suspect]
     Active Substance: ACETAMINOPHEN\ASCORBIC ACID\DIMETHINDENE MALEATE\PHENYLEPHRINE HYDROCHLORIDE\TROXERUTIN
     Indication: NASOPHARYNGITIS
     Dosage: UNK, 1 OR 2 CAPSULES DAILY
     Route: 048
     Dates: start: 20140707
  2. GARDENAL//PHENOBARBITAL [Suspect]
     Active Substance: PHENOBARBITAL
     Indication: EPILEPSY
     Dosage: 2 DF, DAILY
     Route: 048
  3. METRONIDAZOLE SANDOZ [Suspect]
     Active Substance: METRONIDAZOLE
     Indication: UTERINE INFECTION
     Dosage: 3 DF, DAILY
     Route: 048
     Dates: start: 20140707, end: 20140709

REACTIONS (7)
  - Nasopharyngitis [None]
  - Oropharyngeal pain [Unknown]
  - Productive cough [Unknown]
  - Pruritus [Unknown]
  - Uterine infection [None]
  - Nasal congestion [Unknown]
  - Chest discomfort [Unknown]

NARRATIVE: CASE EVENT DATE: 20140709
